FAERS Safety Report 14582829 (Version 1)
Quarter: 2018Q1

REPORT INFORMATION
  Report Type: Spontaneous
  Country: US (occurrence: US)
  Receive Date: 20180228
  Receipt Date: 20180228
  Transmission Date: 20180509
  Serious: No
  Sender: FDA-Public Use
  Company Number: US-BAUSCH-BL-2017-030514

PATIENT
  Age: 39 Year
  Sex: Female
  Weight: 64.47 kg

DRUGS (2)
  1. UCERIS [Suspect]
     Active Substance: BUDESONIDE
     Indication: COLITIS ULCERATIVE
     Route: 048
     Dates: start: 201607, end: 20171027
  2. ASACOL [Concomitant]
     Active Substance: MESALAMINE
     Indication: PRODUCT USED FOR UNKNOWN INDICATION
     Route: 048

REACTIONS (3)
  - Incorrect drug administration duration [Unknown]
  - Weight increased [Not Recovered/Not Resolved]
  - Alopecia [Not Recovered/Not Resolved]

NARRATIVE: CASE EVENT DATE: 201710
